FAERS Safety Report 23456040 (Version 1)
Quarter: 2024Q1

REPORT INFORMATION
  Report Type: Spontaneous
  Country: TR (occurrence: TR)
  Receive Date: 20240130
  Receipt Date: 20240130
  Transmission Date: 20240410
  Serious: Yes (Hospitalization)
  Sender: FDA-Public Use
  Company Number: TR-STERISCIENCE B.V.-2024-ST-000060

PATIENT
  Age: 47 Year
  Sex: Female

DRUGS (2)
  1. BUPIVACAINE [Suspect]
     Active Substance: BUPIVACAINE
     Indication: Migraine
     Dosage: 5MG IN 2.5ML SOLUTION, INJECTED ON EACH SIDE
     Route: 065
  2. DEXAMETHASONE [Suspect]
     Active Substance: DEXAMETHASONE
     Indication: Migraine
     Dosage: 4MG IN 2.5ML SOLUTION, INJECTED ON EACH SIDE
     Route: 065

REACTIONS (1)
  - Skin disorder [Unknown]
